FAERS Safety Report 5094273-2 (Version None)
Quarter: 2006Q3

REPORT INFORMATION
  Report Type: 
  Country: None (occurrence: None)
  Receive Date: 20060831
  Receipt Date: 20060830
  Transmission Date: 20061208
  Serious: Yes (Hospitalization)
  Sender: FDA-Public Use
  Company Number: FR-GLAXOSMITHKLINE-B0436269A

PATIENT
  Age: 72 Year
  Sex: Male

DRUGS (5)
  1. CLAMOXYL [Suspect]
     Indication: SUPERINFECTION LUNG
     Route: 048
     Dates: start: 20000101, end: 20001001
  2. CORVASAL [Concomitant]
     Route: 065
     Dates: start: 20001001
  3. TAREG [Concomitant]
     Route: 065
  4. DIAFUSOR [Concomitant]
     Route: 065
  5. ALDALIX [Concomitant]
     Route: 065

REACTIONS (6)
  - DIARRHOEA [None]
  - DYSPNOEA [None]
  - HYPERSENSITIVITY [None]
  - PYREXIA [None]
  - RASH MACULO-PAPULAR [None]
  - TACHYPNOEA [None]
